FAERS Safety Report 25805670 (Version 1)
Quarter: 2025Q3

REPORT INFORMATION
  Report Type: Report from Study
  Country: US (occurrence: US)
  Receive Date: 20250916
  Receipt Date: 20250916
  Transmission Date: 20251021
  Serious: Yes (Other)
  Sender: ABBVIE
  Company Number: US-ABBVIE-6446716

PATIENT
  Age: 75 Year
  Sex: Male

DRUGS (2)
  1. VYALEV [Suspect]
     Active Substance: FOSCARBIDOPA\FOSLEVODOPA
     Indication: Parkinson^s disease
     Route: 058
     Dates: start: 20250827
  2. VYALEV [Suspect]
     Active Substance: FOSCARBIDOPA\FOSLEVODOPA
     Route: 058
     Dates: start: 20250716

REACTIONS (8)
  - Fall [Recovering/Resolving]
  - Catheter site mass [Recovering/Resolving]
  - Device dislocation [Unknown]
  - Contusion [Unknown]
  - Catheter site induration [Recovering/Resolving]
  - Hip fracture [Unknown]
  - Catheter site erythema [Recovering/Resolving]
  - Confusional state [Unknown]

NARRATIVE: CASE EVENT DATE: 20250101
